FAERS Safety Report 11756476 (Version 2)
Quarter: 2015Q4

REPORT INFORMATION
  Report Type: Report from Study
  Country: US (occurrence: US)
  Receive Date: 20151119
  Receipt Date: 20151127
  Transmission Date: 20160304
  Serious: No
  Sender: FDA-Public Use
  Company Number: US-AMGEN-USASL2015120426

PATIENT
  Age: 61 Year
  Sex: Female

DRUGS (1)
  1. ENBREL [Suspect]
     Active Substance: ETANERCEPT
     Indication: RHEUMATOID ARTHRITIS
     Dosage: 50 MG, QWK
     Route: 065
     Dates: start: 20150728, end: 2015

REACTIONS (5)
  - Contusion [Unknown]
  - Injection site pruritus [Unknown]
  - Local swelling [Unknown]
  - Injection site bruising [Unknown]
  - Pain [Unknown]

NARRATIVE: CASE EVENT DATE: 2015
